FAERS Safety Report 4630272-X (Version None)
Quarter: 2005Q2

REPORT INFORMATION
  Report Type: 
  Country: None (occurrence: None)
  Receive Date: 20050405
  Receipt Date: 20050405
  Transmission Date: 20051028
  Serious: Yes (Hospitalization)
  Sender: FDA-Public Use
  Company Number: None

PATIENT
  Age: 76 Year
  Sex: Male
  Weight: 88.905 kg

DRUGS (1)
  1. GEMCITABINE [Suspect]
     Indication: PANCREATIC CARCINOMA
     Dosage: 1500MG/M2 IV OVER 150 MIN. A WEEK X 3 WEEKS FOLLOWED BY 1 WEEK REST - X UNTIL DZ PROGRESSION
     Route: 042

REACTIONS (1)
  - PNEUMONIA [None]
